FAERS Safety Report 20540673 (Version 1)
Quarter: 2022Q1

REPORT INFORMATION
  Report Type: Report from Study
  Country: US (occurrence: US)
  Receive Date: 20220302
  Receipt Date: 20220302
  Transmission Date: 20220423
  Serious: Yes (Other)
  Sender: FDA-Public Use
  Company Number: US-JNJFOC-20211150659

PATIENT

DRUGS (4)
  1. ELMIRON [Suspect]
     Active Substance: PENTOSAN POLYSULFATE SODIUM
     Indication: Cystitis interstitial
     Route: 065
  2. ELMIRON [Suspect]
     Active Substance: PENTOSAN POLYSULFATE SODIUM
     Indication: Cystitis
  3. ELMIRON [Suspect]
     Active Substance: PENTOSAN POLYSULFATE SODIUM
     Indication: Bladder disorder
  4. ELMIRON [Suspect]
     Active Substance: PENTOSAN POLYSULFATE SODIUM
     Indication: Bladder pain

REACTIONS (35)
  - Macular degeneration [Unknown]
  - Dry age-related macular degeneration [Unknown]
  - Neovascular age-related macular degeneration [Unknown]
  - Age-related macular degeneration [Unknown]
  - Blindness [Unknown]
  - Blindness unilateral [Unknown]
  - Blindness transient [Unknown]
  - Retinal dystrophy [Unknown]
  - Retinal injury [Unknown]
  - Retinal toxicity [Unknown]
  - Macular telangiectasia [Unknown]
  - Retinopathy [Unknown]
  - Tunnel vision [Unknown]
  - Vitreous detachment [Unknown]
  - Retinal aneurysm [Unknown]
  - Retinal degeneration [Unknown]
  - Retinal detachment [Unknown]
  - Retinal tear [Unknown]
  - Macular hole [Unknown]
  - Macular fibrosis [Unknown]
  - Chromatopsia [Unknown]
  - Photophobia [Unknown]
  - Photopsia [Unknown]
  - Vitreous floaters [Unknown]
  - Visual impairment [Unknown]
  - Visual field defect [Unknown]
  - Visual acuity reduced [Unknown]
  - Retinal disorder [Unknown]
  - Retinal drusen [Unknown]
  - Retinal scar [Unknown]
  - Macular pigmentation [Unknown]
  - Maculopathy [Unknown]
  - Eye disorder [Unknown]
  - Retinal pigmentation [Unknown]
  - Vision blurred [Unknown]
